FAERS Safety Report 8771833 (Version 2)
Quarter: 2012Q4

REPORT INFORMATION
  Report Type: 
  Country: US (occurrence: US)
  Receive Date: 20120905
  Receipt Date: 20121003
  Transmission Date: 20130627
  Serious: Yes (Other)
  Sender: FDA-Public Use
  Company Number: US-PFIZER INC-2012214591

PATIENT
  Age: 54 Year
  Sex: Female
  Weight: 94 kg

DRUGS (16)
  1. LYRICA [Suspect]
     Indication: NEURALGIA
     Dosage: 75 mg, 1x/day
     Route: 048
     Dates: end: 201107
  2. LYRICA [Suspect]
     Indication: NEUROPATHY PERIPHERAL
  3. GABAPENTIN [Suspect]
     Indication: NEURALGIA
     Dosage: 300 mg, 3x/day
     Route: 048
     Dates: start: 201108
  4. GABAPENTIN [Suspect]
     Dosage: 600 mg, 3x/day
     Route: 048
  5. GABAPENTIN [Suspect]
     Dosage: UNK
     Route: 048
  6. PRAVASTATIN [Concomitant]
     Dosage: 40 mg, 1x/day
     Route: 048
  7. GLYBURIDE [Concomitant]
     Dosage: 2.5 mg, 1x/day
  8. JANUVIA [Concomitant]
     Dosage: 100 mg, 1x/day
  9. HYDROCODONE W/ACETAMINOPHEN [Concomitant]
     Dosage: 10/325 mg, as needed
     Route: 048
  10. METOPROLOL [Concomitant]
     Dosage: 25 mg, 1x/day
  11. LISINOPRIL [Concomitant]
     Dosage: 20 mg, 1x/day
     Route: 048
  12. PREDNISONE [Concomitant]
     Dosage: 10 mg, 1x/day
  13. CYMBALTA [Concomitant]
     Dosage: 60 mg, 1x/day
     Route: 048
  14. OXYBUTYNIN [Concomitant]
     Dosage: 5 mg, 2x/day
  15. LANTUS [Concomitant]
     Dosage: UNK, 1x/day
  16. HUMIRA [Concomitant]
     Dosage: 40 mg, once every two weeks

REACTIONS (4)
  - Rotator cuff syndrome [Unknown]
  - Arthritis [Unknown]
  - Neuralgia [Unknown]
  - Drug ineffective [Unknown]
